FAERS Safety Report 7124788-4 (Version None)
Quarter: 2010Q4

REPORT INFORMATION
  Report Type: 
  Country: None (occurrence: None)
  Receive Date: 20101129
  Receipt Date: 20101117
  Transmission Date: 20110411
  Serious: Yes (Life-Threatening, Hospitalization, Other)
  Sender: FDA-Public Use
  Company Number: JP-ASTRAZENECA-2008AP01843

PATIENT
  Age: 16287 Day
  Sex: Female
  Weight: 55 kg

DRUGS (2)
  1. SEROQUEL [Suspect]
     Route: 048
  2. SEROQUEL [Suspect]
     Dosage: 87 TABLETS TAKEN
     Route: 048
     Dates: start: 20080225, end: 20080225

REACTIONS (5)
  - ALTERED STATE OF CONSCIOUSNESS [None]
  - BLOOD CREATINE PHOSPHOKINASE INCREASED [None]
  - INTENTIONAL OVERDOSE [None]
  - THERAPEUTIC AGENT TOXICITY [None]
  - TONIC CONVULSION [None]
